FAERS Safety Report 8618648-7 (Version None)
Quarter: 2012Q3

REPORT INFORMATION
  Report Type: 
  Country: None (occurrence: None)
  Receive Date: 20120814
  Receipt Date: 20120814
  Transmission Date: 20120928
  Serious: No
  Sender: FDA-Public Use
  Company Number: None

PATIENT
  Age: 51 Year
  Sex: Female
  Weight: 58.9676 kg

DRUGS (1)
  1. CARBOCAINE [Suspect]
     Indication: TOOTH FRACTURE

REACTIONS (5)
  - DIZZINESS [None]
  - HYPERHIDROSIS [None]
  - RETCHING [None]
  - NAUSEA [None]
  - INCONTINENCE [None]
